FAERS Safety Report 12978308 (Version 1)
Quarter: 2016Q4

REPORT INFORMATION
  Report Type: Spontaneous
  Country: US (occurrence: US)
  Receive Date: 20161128
  Receipt Date: 20161128
  Transmission Date: 20170207
  Serious: No
  Sender: FDA-Public Use
  Company Number: US-WARNER CHILCOTT, LLC-1060093

PATIENT
  Sex: Female
  Weight: 56.82 kg

DRUGS (1)
  1. LO LOESTRIN FE [Suspect]
     Active Substance: ETHINYL ESTRADIOL\NORETHINDRONE ACETATE
     Route: 048

REACTIONS (6)
  - Lip exfoliation [Unknown]
  - Lip dry [Unknown]
  - Blister [Unknown]
  - Trichorrhexis [Unknown]
  - Aphthous ulcer [Unknown]
  - Oral discomfort [Unknown]
